FAERS Safety Report 8336859-5 (Version None)
Quarter: 2012Q2

REPORT INFORMATION
  Report Type: 
  Country: None (occurrence: None)
  Receive Date: 20120501
  Receipt Date: 20120417
  Transmission Date: 20120825
  Serious: Yes (Other)
  Sender: FDA-Public Use
  Company Number: US-JNJFOC-20120408572

PATIENT

DRUGS (2)
  1. TEMOZOLOMIDE [Suspect]
     Indication: METASTATIC MALIGNANT MELANOMA
     Dosage: 75 MG/M2, 1 IN 1 DAY, ORAL
     Route: 048
  2. DECITABINE [Suspect]
     Indication: METASTATIC MALIGNANT MELANOMA
     Dosage: 0.075 MG/KG, 1 IN 1 DAY, INTRAVENOUS
     Route: 042

REACTIONS (2)
  - HAEMATOTOXICITY [None]
  - NEUTROPENIA [None]
